FAERS Safety Report 22309971 (Version 9)
Quarter: 2024Q1

REPORT INFORMATION
  Report Type: Other
  Country: SK (occurrence: SK)
  Receive Date: 20230511
  Receipt Date: 20240219
  Transmission Date: 20240410
  Serious: Yes (Life-Threatening, Hospitalization, Other)
  Sender: FDA-Public Use
  Company Number: SK-MYLANLABS-2023M1047806

PATIENT
  Age: 76 Year
  Sex: Male
  Weight: 80 kg

DRUGS (23)
  1. INSULIN GLARGINE [Interacting]
     Active Substance: INSULIN GLARGINE
     Indication: Diabetic neuropathy
     Dosage: 75 MILLIGRAM, QD
     Route: 065
  2. INSULIN GLARGINE [Interacting]
     Active Substance: INSULIN GLARGINE
     Indication: Type 2 diabetes mellitus
     Dosage: 225 MILLIGRAM, QD
     Route: 065
  3. INSULIN GLARGINE [Interacting]
     Active Substance: INSULIN GLARGINE
     Dosage: 150 MILLIGRAM, QD
     Route: 065
  4. INSULIN GLARGINE [Interacting]
     Active Substance: INSULIN GLARGINE
     Dosage: UNK UNK, QD
     Route: 065
  5. AMIODARONE HYDROCHLORIDE [Interacting]
     Active Substance: AMIODARONE HYDROCHLORIDE
     Indication: Cardiac failure chronic
     Dosage: 200 MILLIGRAM, QD
     Route: 065
  6. GLIMEPIRIDE [Interacting]
     Active Substance: GLIMEPIRIDE
     Indication: Type 2 diabetes mellitus
     Dosage: 6 MILLIGRAM, QD
     Route: 065
  7. METOPROLOL [Suspect]
     Active Substance: METOPROLOL
     Indication: Type 2 diabetes mellitus
     Dosage: 150 MILLIGRAM, QD
     Route: 065
  8. METOPROLOL [Suspect]
     Active Substance: METOPROLOL
     Dosage: UNK
     Route: 065
  9. FUROSEMIDE [Suspect]
     Active Substance: FUROSEMIDE
     Indication: Cardiac failure chronic
     Dosage: 125 MILLIGRAM, QD
     Route: 065
  10. FUROSEMIDE [Suspect]
     Active Substance: FUROSEMIDE
     Dosage: UNK
     Route: 065
  11. EPLERENONE [Suspect]
     Active Substance: EPLERENONE
     Indication: Cardiac failure chronic
     Dosage: 50 MILLIGRAM, QD
     Route: 065
  12. EPLERENONE [Suspect]
     Active Substance: EPLERENONE
     Dosage: UNK
     Route: 065
  13. THIOCTIC ACID [Suspect]
     Active Substance: THIOCTIC ACID
     Indication: Product used for unknown indication
     Dosage: UNK
     Route: 065
  14. THIOCTIC ACID [Suspect]
     Active Substance: THIOCTIC ACID
     Dosage: UNK
     Route: 065
  15. DABIGATRAN ETEXILATE [Suspect]
     Active Substance: DABIGATRAN ETEXILATE
     Indication: Product used for unknown indication
     Dosage: UNK
     Route: 065
  16. PREGABALIN [Interacting]
     Active Substance: PREGABALIN
     Indication: Diabetic neuropathy
     Dosage: 75 MILLIGRAM, QD
     Route: 065
  17. PREGABALIN [Interacting]
     Active Substance: PREGABALIN
     Dosage: 225 MILLIGRAM, QD
     Route: 065
  18. PREGABALIN [Interacting]
     Active Substance: PREGABALIN
     Dosage: 150 MILLIGRAM, QD
     Route: 065
  19. ATORVASTATIN [Suspect]
     Active Substance: ATORVASTATIN
     Indication: Cardiac failure chronic
     Dosage: 80 MILLIGRAM, QD
     Route: 065
  20. ATORVASTATIN [Suspect]
     Active Substance: ATORVASTATIN
     Dosage: UNK
     Route: 065
  21. DABIGATRAN [Concomitant]
     Active Substance: DABIGATRAN
     Indication: Cardiac failure chronic
     Dosage: 300 MILLIGRAM, QD
     Route: 065
  22. VITAMINS NOS [Suspect]
     Active Substance: VITAMINS
     Indication: Diabetic neuropathy
     Dosage: UNK
     Route: 065
  23. VITAMINS NOS [Suspect]
     Active Substance: VITAMINS
     Indication: Vitamin supplementation

REACTIONS (7)
  - Potentiating drug interaction [Recovered/Resolved]
  - Diabetic neuropathy [Recovering/Resolving]
  - Condition aggravated [Recovering/Resolving]
  - Hypotension [Recovering/Resolving]
  - Hypoglycaemia [Recovering/Resolving]
  - Drug interaction [Recovered/Resolved]
  - Hyperthyroidism [Recovered/Resolved]
